FAERS Safety Report 9237471 (Version 1)
Quarter: 2013Q2

REPORT INFORMATION
  Report Type: Spontaneous
  Country: US (occurrence: US)
  Receive Date: 20130417
  Receipt Date: 20130417
  Transmission Date: 20140414
  Serious: No
  Sender: FDA-Public Use
  Company Number: US-PFIZER INC-2013116219

PATIENT
  Age: 47 Year
  Sex: Female
  Weight: 65.76 kg

DRUGS (5)
  1. IBUPROFEN [Suspect]
     Indication: PAIN
     Dosage: UNK, 1X/DAY
  2. LYRICA [Suspect]
     Indication: SPINAL COLUMN STENOSIS
     Dosage: 150 MG, 3X/DAY
     Dates: end: 201303
  3. LYRICA [Suspect]
     Indication: NERVE COMPRESSION
  4. LYRICA [Suspect]
     Indication: FIBROMYALGIA
  5. ESTRADIOL [Concomitant]
     Indication: HORMONE REPLACEMENT THERAPY
     Dosage: 0.5 MG, 1X/DAY
     Route: 048

REACTIONS (2)
  - Drug ineffective [Unknown]
  - Pain [Not Recovered/Not Resolved]
